FAERS Safety Report 18907291 (Version 1)
Quarter: 2021Q1

REPORT INFORMATION
  Report Type: Spontaneous
  Country: US (occurrence: US)
  Receive Date: 20210217
  Receipt Date: 20210217
  Transmission Date: 20210420
  Serious: No
  Sender: FDA-Public Use
  Company Number: US-VALIDUS PHARMACEUTICALS LLC-US-2020VAL000579

PATIENT
  Age: 59 Year
  Sex: Female
  Weight: 131.5 kg

DRUGS (7)
  1. TYVASO [Suspect]
     Active Substance: TREPROSTINIL
     Dosage: UNK
     Route: 055
     Dates: start: 20200516, end: 202005
  2. COUMADIN [Concomitant]
     Active Substance: WARFARIN SODIUM
     Indication: PRODUCT USED FOR UNKNOWN INDICATION
     Dosage: UNK
  3. LASIX [Suspect]
     Active Substance: FUROSEMIDE
     Indication: PRODUCT USED FOR UNKNOWN INDICATION
     Dosage: UNK
     Route: 065
  4. TYVASO [Suspect]
     Active Substance: TREPROSTINIL
     Indication: PULMONARY ARTERIAL HYPERTENSION
     Dosage: UNK
     Route: 055
     Dates: start: 20161205
  5. TYVASO [Suspect]
     Active Substance: TREPROSTINIL
     Dosage: 18?54 ?G, QID (3?9) BREATHS
     Route: 055
     Dates: start: 202005
  6. LASIX [Suspect]
     Active Substance: FUROSEMIDE
     Dosage: DOSE INCREASED
     Route: 065
  7. TYVASO [Suspect]
     Active Substance: TREPROSTINIL
     Dosage: 18?54 ?G, QID (3?9) BREATHS (ADDITIONAL BATCH)
     Route: 055
     Dates: start: 202005

REACTIONS (7)
  - Diarrhoea [Unknown]
  - Dyspnoea [Unknown]
  - Lip pain [Unknown]
  - Chronic obstructive pulmonary disease [Unknown]
  - Chapped lips [Unknown]
  - Oedema peripheral [Unknown]
  - Headache [Unknown]

NARRATIVE: CASE EVENT DATE: 20200515
